FAERS Safety Report 5517477-0 (Version None)
Quarter: 2007Q4

REPORT INFORMATION
  Report Type: 
  Country: None (occurrence: None)
  Receive Date: 20071114
  Receipt Date: 20071103
  Transmission Date: 20080405
  Serious: Yes (Hospitalization, Other)
  Sender: FDA-Public Use
  Company Number: US-PFIZER INC-2007093652

PATIENT
  Sex: Female
  Weight: 109.09 kg

DRUGS (6)
  1. CHANTIX [Suspect]
  2. PERCOCET [Concomitant]
  3. ZANAFLEX [Concomitant]
     Indication: NEURALGIA
  4. AMBIEN [Concomitant]
  5. XANAX [Concomitant]
  6. VYTORIN [Concomitant]

REACTIONS (6)
  - CARDIAC DISORDER [None]
  - CHEST PAIN [None]
  - DIABETES MELLITUS [None]
  - DIZZINESS [None]
  - MALAISE [None]
  - NAUSEA [None]
